FAERS Safety Report 5043743-1 (Version None)
Quarter: 2006Q3

REPORT INFORMATION
  Report Type: 
  Country: None (occurrence: None)
  Receive Date: 20060706
  Receipt Date: 20060626
  Transmission Date: 20061208
  Serious: Yes (Hospitalization, Other)
  Sender: FDA-Public Use
  Company Number: DE-JNJFOC-20060605732

PATIENT
  Age: 35 Year
  Sex: Female

DRUGS (9)
  1. HALDOL [Suspect]
     Indication: DRUG USE FOR UNKNOWN INDICATION
     Route: 048
  2. CLOZAPINE [Interacting]
     Route: 048
  3. CLOZAPINE [Interacting]
     Route: 048
  4. CLOZAPINE [Interacting]
     Route: 048
  5. CLOZAPINE [Interacting]
     Indication: DRUG USE FOR UNKNOWN INDICATION
     Route: 048
  6. SEROQUEL [Interacting]
     Indication: DRUG USE FOR UNKNOWN INDICATION
     Route: 048
  7. TAVOR [Concomitant]
  8. TAVOR [Concomitant]
  9. TAVOR [Concomitant]

REACTIONS (3)
  - DRUG INTERACTION [None]
  - DRUG TOXICITY [None]
  - GRAND MAL CONVULSION [None]
